FAERS Safety Report 9075091 (Version 1)
Quarter: 2013Q1

REPORT INFORMATION
  Report Type: Report from Study
  Country: US (occurrence: US)
  Receive Date: 20130129
  Receipt Date: 20130129
  Transmission Date: 20140127
  Serious: No
  Sender: FDA-Public Use
  Company Number: US-ABBOTT-12P-163-0921675-00

PATIENT
  Age: 48 Year
  Sex: Female

DRUGS (3)
  1. HUMIRA 40 MG/0.8 ML PEN [Suspect]
     Indication: RHEUMATOID ARTHRITIS
     Dates: start: 20120125
  2. ADVAIR [Concomitant]
     Indication: ASTHMA
     Dosage: TAKES WHEN OUT OF BREATH HOWEVER SUPPOSED TO TAKE IT EVERY DAY
  3. VENTOLIN [Concomitant]
     Indication: ASTHMA

REACTIONS (2)
  - Injection site rash [Recovering/Resolving]
  - Injection site pain [Recovering/Resolving]
